FAERS Safety Report 6264052-9 (Version None)
Quarter: 2009Q3

REPORT INFORMATION
  Report Type: 
  Country: None (occurrence: None)
  Receive Date: 20090710
  Receipt Date: 20090629
  Transmission Date: 20100115
  Serious: Yes (Hospitalization)
  Sender: FDA-Public Use
  Company Number: PHHY2009FR28017

PATIENT
  Sex: Female

DRUGS (9)
  1. TRILEPTAL [Suspect]
     Dosage: 300 MG, TID
     Route: 048
     Dates: start: 20030101
  2. TRILEPTAL [Suspect]
     Dosage: UNK
     Route: 048
     Dates: start: 20090527
  3. ESIDRIX [Suspect]
     Indication: HYPERTENSION
     Dosage: 25 MG, QD
     Route: 048
     Dates: start: 20090328
  4. ESIDRIX [Suspect]
     Dosage: UNK
     Route: 048
     Dates: start: 20090330, end: 20090330
  5. EFFEXOR [Suspect]
     Dosage: 75 MG, BID
     Route: 048
     Dates: start: 20030101
  6. EFFEXOR [Suspect]
     Dosage: REDUCED TO HALF
     Route: 048
     Dates: start: 20090330
  7. NISIS [Concomitant]
     Indication: HYPERTENSION
     Dosage: 80 MG, QD
     Route: 048
     Dates: start: 20060101
  8. ESTREVA [Concomitant]
     Indication: MENOPAUSE
  9. ESTIMA [Concomitant]
     Indication: MENOPAUSE

REACTIONS (4)
  - ACCIDENTAL OVERDOSE [None]
  - HYPONATRAEMIA [None]
  - INAPPROPRIATE ANTIDIURETIC HORMONE SECRETION [None]
  - LOSS OF CONSCIOUSNESS [None]
